FAERS Safety Report 14880091 (Version 1)
Quarter: 2018Q2

REPORT INFORMATION
  Report Type: Spontaneous
  Country: US (occurrence: US)
  Receive Date: 20180511
  Receipt Date: 20180511
  Transmission Date: 20180711
  Serious: No
  Sender: FDA-Public Use
  Company Number: US-CIPLA LTD.-2017US23210

PATIENT

DRUGS (4)
  1. TOPIRAMATE. [Suspect]
     Active Substance: TOPIRAMATE
     Dosage: 25 MG, INVAGEN PRODUCT
     Route: 065
  2. TIZANIDINE. [Suspect]
     Active Substance: TIZANIDINE
     Indication: MUSCLE RELAXANT THERAPY
     Dosage: 2 MG, QD
     Route: 065
  3. ELMIRON [Suspect]
     Active Substance: PENTOSAN POLYSULFATE SODIUM
     Indication: URINARY TRACT INFECTION
     Dosage: 100 MG, TID
     Route: 065
  4. TOPIRAMATE. [Suspect]
     Active Substance: TOPIRAMATE
     Indication: PRODUCT USED FOR UNKNOWN INDICATION
     Dosage: 25 MG, UNK
     Route: 048
     Dates: start: 20170928

REACTIONS (11)
  - Weight increased [Unknown]
  - Decreased appetite [Recovered/Resolved]
  - Slow response to stimuli [Unknown]
  - Social avoidant behaviour [Unknown]
  - Drug ineffective [Unknown]
  - Product substitution issue [Unknown]
  - Headache [Unknown]
  - Irritability [Unknown]
  - Insomnia [Unknown]
  - Muscle spasms [Unknown]
  - Amnesia [Recovered/Resolved]
